FAERS Safety Report 19047382 (Version 1)
Quarter: 2021Q1

REPORT INFORMATION
  Report Type: Spontaneous
  Country: US (occurrence: US)
  Receive Date: 20210323
  Receipt Date: 20210323
  Transmission Date: 20210420
  Serious: Yes (Hospitalization, Other)
  Sender: FDA-Public Use
  Company Number: US-PFIZER INC-2021272948

PATIENT
  Age: 65 Year
  Sex: Female

DRUGS (10)
  1. ALBUTEROL [SALBUTAMOL] [Concomitant]
     Active Substance: ALBUTEROL
     Dosage: UNK
  2. IPRATROPIUM [Concomitant]
     Active Substance: IPRATROPIUM
     Dosage: UNK
  3. TERBUTALINE [Concomitant]
     Active Substance: TERBUTALINE
     Dosage: UNK
  4. THEOPHYLLINE [Suspect]
     Active Substance: THEOPHYLLINE ANHYDROUS
     Indication: ARRHYTHMIA SUPRAVENTRICULAR
     Dosage: 300 MG, 3X/DAY
  5. HYDROCHLOROTHIAZIDE. [Concomitant]
     Active Substance: HYDROCHLOROTHIAZIDE
     Dosage: UNK
  6. TRIAMTERENE. [Concomitant]
     Active Substance: TRIAMTERENE
     Dosage: UNK
  7. ALPRAZOLAM. [Concomitant]
     Active Substance: ALPRAZOLAM
     Dosage: UNK
  8. ESTROPIPATE. [Concomitant]
     Active Substance: ESTROPIPATE
     Dosage: UNK
  9. NORFLOXACIN [Interacting]
     Active Substance: NORFLOXACIN
     Indication: URINARY TRACT INFECTION
     Dosage: UNK
  10. DIGOXIN. [Concomitant]
     Active Substance: DIGOXIN
     Indication: ARRHYTHMIA SUPRAVENTRICULAR
     Dosage: UNK

REACTIONS (4)
  - Drug level increased [Recovered/Resolved]
  - Drug interaction [Unknown]
  - Nausea [Recovered/Resolved]
  - Vomiting [Recovered/Resolved]
